FAERS Safety Report 14299228 (Version 2)
Quarter: 2018Q1

REPORT INFORMATION
  Report Type: Report from Study
  Country: JP (occurrence: JP)
  Receive Date: 20171219
  Receipt Date: 20180215
  Transmission Date: 20180509
  Serious: Yes (Other)
  Sender: FDA-Public Use
  Company Number: JP-UCBSA-2017042166

PATIENT
  Age: 51 Year
  Sex: Female
  Weight: 57 kg

DRUGS (5)
  1. LEVETIRACETAM. [Suspect]
     Active Substance: LEVETIRACETAM
     Indication: PARTIAL SEIZURES WITH SECONDARY GENERALISATION
     Dosage: 500 MG, 2X/DAY (BID)
     Route: 041
     Dates: start: 20160501
  2. YUCION-S [Suspect]
     Active Substance: AMPICILLIN SODIUM\SULBACTAM SODIUM
     Dosage: 3.0 G, 2X/DAY (BID)
     Route: 042
     Dates: start: 20160503, end: 20160508
  3. FOSPHENYTOIN SODIUM. [Concomitant]
     Active Substance: FOSPHENYTOIN SODIUM
     Indication: PARTIAL SEIZURES WITH SECONDARY GENERALISATION
     Route: 065
     Dates: start: 20160501, end: 20160501
  4. YUCION-S [Suspect]
     Active Substance: AMPICILLIN SODIUM\SULBACTAM SODIUM
     Indication: PNEUMONIA ASPIRATION
     Dosage: 3.0 G, ONCE DAILY (QD)
     Route: 042
     Dates: start: 20160502, end: 20160502
  5. CERCINE [Concomitant]
     Active Substance: DIAZEPAM
     Indication: PARTIAL SEIZURES WITH SECONDARY GENERALISATION
     Route: 065
     Dates: start: 20160501, end: 20160501

REACTIONS (3)
  - Pneumonia aspiration [Recovered/Resolved]
  - Off label use [Unknown]
  - Hepatic function abnormal [Recovering/Resolving]

NARRATIVE: CASE EVENT DATE: 20160501
